APPROVED DRUG PRODUCT: CEFDINIR
Active Ingredient: CEFDINIR
Strength: 250MG/5ML
Dosage Form/Route: FOR SUSPENSION;ORAL
Application: A065259 | Product #002 | TE Code: AB
Applicant: LUPIN LTD
Approved: May 7, 2007 | RLD: No | RS: No | Type: RX